FAERS Safety Report 16457135 (Version 1)
Quarter: 2019Q2

REPORT INFORMATION
  Report Type: Spontaneous
  Country: US (occurrence: US)
  Receive Date: 20190510
  Receipt Date: 20190510
  Transmission Date: 20190711
  Serious: No
  Sender: FDA-Public Use
  Company Number: None

PATIENT
  Age: 57 Year
  Sex: Female

DRUGS (11)
  1. K-TAB [Concomitant]
     Active Substance: POTASSIUM CHLORIDE
  2. FORSEMIDE [Concomitant]
  3. FLONASE [Concomitant]
     Active Substance: FLUTICASONE PROPIONATE
  4. VITRON-C [Concomitant]
     Active Substance: ASCORBIC ACID\IRON
  5. NIFEDIPINE. [Concomitant]
     Active Substance: NIFEDIPINE
  6. SILDENAFIL. [Concomitant]
     Active Substance: SILDENAFIL
  7. OPSUMIT [Suspect]
     Active Substance: MACITENTAN
     Indication: PULMONARY HYPERTENSION
  8. DIGOXIN. [Concomitant]
     Active Substance: DIGOXIN
  9. PREDNISONE. [Concomitant]
     Active Substance: PREDNISONE
  10. FAMOTIDINE. [Concomitant]
     Active Substance: FAMOTIDINE
  11. ATORVASTATIN [Concomitant]
     Active Substance: ATORVASTATIN

REACTIONS (3)
  - Faecaloma [None]
  - Constipation [None]
  - Faeces hard [None]

NARRATIVE: CASE EVENT DATE: 20190407
